FAERS Safety Report 4960870-5 (Version None)
Quarter: 2006Q1

REPORT INFORMATION
  Report Type: 
  Country: None (occurrence: None)
  Receive Date: 20060329
  Receipt Date: 20060314
  Transmission Date: 20060701
  Serious: No
  Sender: FDA-Public Use
  Company Number: 2006P1000195

PATIENT
  Age: 41 Year
  Sex: Female

DRUGS (1)
  1. NICARDIPINE HYDROCHLORIDE [Suspect]
     Indication: PRE-ECLAMPSIA
     Dosage: IV
     Route: 042
     Dates: start: 20031212, end: 20031214

REACTIONS (10)
  - ANOREXIA [None]
  - CAESAREAN SECTION [None]
  - DIARRHOEA [None]
  - DIZZINESS [None]
  - DRUG EXPOSURE DURING PREGNANCY [None]
  - DRY MOUTH [None]
  - FATIGUE [None]
  - NASAL CONGESTION [None]
  - POSTPARTUM HAEMORRHAGE [None]
  - PREMATURE LABOUR [None]
